FAERS Safety Report 25134561 (Version 2)
Quarter: 2025Q2

REPORT INFORMATION
  Report Type: Report from Study
  Country: CA (occurrence: CA)
  Receive Date: 20250328
  Receipt Date: 20250510
  Transmission Date: 20250716
  Serious: Yes (Hospitalization, Other)
  Sender: JOHNSON AND JOHNSON
  Company Number: CA-JNJFOC-20230133524

PATIENT
  Age: 21 Year
  Sex: Female
  Weight: 82 kg

DRUGS (4)
  1. REMICADE [Suspect]
     Active Substance: INFLIXIMAB
     Indication: Colitis ulcerative
     Dosage: EXPIRY: 01-AUG-2025
     Route: 041
     Dates: start: 20160108
  2. REMICADE [Suspect]
     Active Substance: INFLIXIMAB
     Indication: Colitis
     Route: 041
  3. REMICADE [Suspect]
     Active Substance: INFLIXIMAB
     Route: 041
  4. REMICADE [Suspect]
     Active Substance: INFLIXIMAB
     Route: 041

REACTIONS (17)
  - Exposure during pregnancy [Recovered/Resolved]
  - Nausea [Not Recovered/Not Resolved]
  - Hydronephrosis [Recovered/Resolved]
  - Nephrolithiasis [Recovered/Resolved]
  - Disease complication [Recovered/Resolved]
  - Caesarean section [Unknown]
  - Endometrial adenocarcinoma [Not Recovered/Not Resolved]
  - Dehydration [Unknown]
  - Ovarian cyst [Unknown]
  - Off label use [Unknown]
  - Weight decreased [Unknown]
  - Fatigue [Not Recovered/Not Resolved]
  - Constipation [Not Recovered/Not Resolved]
  - Procedural pain [Recovered/Resolved]
  - Infection [Unknown]
  - Food aversion [Unknown]
  - Inappropriate schedule of product administration [Unknown]

NARRATIVE: CASE EVENT DATE: 20160108
